APPROVED DRUG PRODUCT: CINACALCET HYDROCHLORIDE
Active Ingredient: CINACALCET HYDROCHLORIDE
Strength: EQ 90MG BASE
Dosage Form/Route: TABLET;ORAL
Application: A207008 | Product #003
Applicant: SUN PHARMACEUTICAL INDUSTRIES LTD
Approved: Oct 11, 2018 | RLD: No | RS: No | Type: DISCN